FAERS Safety Report 20533876 (Version 4)
Quarter: 2022Q3

REPORT INFORMATION
  Report Type: Spontaneous
  Country: US (occurrence: US)
  Receive Date: 20220301
  Receipt Date: 20220802
  Transmission Date: 20221027
  Serious: No
  Sender: FDA-Public Use
  Company Number: US-SA-SAC20220222000013

PATIENT

DRUGS (4)
  1. LARONIDASE [Suspect]
     Active Substance: LARONIDASE
     Indication: Mucopolysaccharidosis I
     Dosage: 11.6 MG, QW
     Route: 042
     Dates: start: 2021
  2. LARONIDASE [Suspect]
     Active Substance: LARONIDASE
     Dosage: 11.6 MG, QW
     Route: 042
     Dates: start: 20220210
  3. LARONIDASE [Suspect]
     Active Substance: LARONIDASE
     Dosage: 11.6 MG, QW
     Route: 042
     Dates: start: 20220415
  4. DIPHENHYDRAMINE HYDROCHLORIDE [Suspect]
     Active Substance: DIPHENHYDRAMINE HYDROCHLORIDE
     Indication: Product used for unknown indication
     Dosage: UNK
     Route: 065

REACTIONS (4)
  - Pyrexia [Recovered/Resolved]
  - Body temperature increased [Unknown]
  - Product preparation issue [Unknown]
  - Somnolence [Recovered/Resolved]

NARRATIVE: CASE EVENT DATE: 20220217
